FAERS Safety Report 21191804 (Version 1)
Quarter: 2022Q3

REPORT INFORMATION
  Report Type: Spontaneous
  Country: US (occurrence: None)
  Receive Date: 20220809
  Receipt Date: 20220809
  Transmission Date: 20221027
  Serious: No
  Sender: FDA-Public Use
  Company Number: None

PATIENT
  Sex: Male

DRUGS (1)
  1. TETRABENAZINE [Suspect]
     Active Substance: TETRABENAZINE
     Indication: Tourette^s disorder
     Dosage: FREQUENCY : TWICE A DAY;?
     Route: 048
     Dates: start: 202207

REACTIONS (3)
  - Drug ineffective [None]
  - Tic [None]
  - Condition aggravated [None]
